FAERS Safety Report 10554978 (Version 2)
Quarter: 2014Q4

REPORT INFORMATION
  Report Type: Spontaneous
  Country: US (occurrence: US)
  Receive Date: 20141030
  Receipt Date: 20141205
  Transmission Date: 20150529
  Serious: Yes (Hospitalization)
  Sender: FDA-Public Use
  Company Number: US-PFIZER INC-2014296783

PATIENT
  Age: 74 Year
  Sex: Male

DRUGS (4)
  1. CASODEX [Concomitant]
     Active Substance: BICALUTAMIDE
     Dosage: 50 MG, UNK
     Dates: start: 2007
  2. ACYCLOVIR. [Concomitant]
     Active Substance: ACYCLOVIR
     Dosage: 400 MG, UNK
     Dates: start: 201406
  3. VFEND [Suspect]
     Active Substance: VORICONAZOLE
     Indication: LUNG INFECTION
     Dosage: 200 MG, 2X/DAY
     Dates: start: 201406
  4. METFORMIN [Concomitant]
     Active Substance: METFORMIN HYDROCHLORIDE
     Dosage: 500 MG, UNK
     Dates: start: 201406

REACTIONS (1)
  - Gastrointestinal disorder [Not Recovered/Not Resolved]

NARRATIVE: CASE EVENT DATE: 20141017
